FAERS Safety Report 20211535 (Version 1)
Quarter: 2021Q4

REPORT INFORMATION
  Report Type: Report from Study
  Country: US (occurrence: US)
  Receive Date: 20211221
  Receipt Date: 20211221
  Transmission Date: 20220304
  Serious: No
  Sender: FDA-Public Use
  Company Number: US-BIOVITRUM-2021US12134

PATIENT
  Sex: Male

DRUGS (3)
  1. SYNAGIS [Suspect]
     Active Substance: PALIVIZUMAB
     Indication: Antiviral prophylaxis
     Route: 030
     Dates: start: 20210723
  2. TYLENOL [Concomitant]
     Active Substance: ACETAMINOPHEN
  3. POLY VI SOL [Concomitant]

REACTIONS (1)
  - Pyrexia [Recovered/Resolved]
